FAERS Safety Report 11724994 (Version 1)
Quarter: 2015Q4

REPORT INFORMATION
  Report Type: Spontaneous
  Country: US (occurrence: US)
  Receive Date: 20151111
  Receipt Date: 20151111
  Transmission Date: 20160304
  Serious: No
  Sender: FDA-Public Use
  Company Number: US-UCBSA-2014006046

PATIENT
  Age: 29 Year
  Sex: Female

DRUGS (1)
  1. VIMPAT [Suspect]
     Active Substance: LACOSAMIDE
     Indication: CONVULSION PROPHYLAXIS
     Dosage: 200 MG, 3X/DAY (TID)
     Dates: start: 200906

REACTIONS (3)
  - Off label use [Unknown]
  - Overdose [Unknown]
  - Aura [Unknown]

NARRATIVE: CASE EVENT DATE: 200906
